FAERS Safety Report 8844537 (Version 1)
Quarter: 2012Q4

REPORT INFORMATION
  Report Type: Spontaneous
  Country: JP (occurrence: None)
  Receive Date: 20121012
  Receipt Date: 20121012
  Transmission Date: 20130627
  Serious: Yes (Hospitalization)
  Sender: FDA-Public Use
  Company Number: 2012P1060412

PATIENT
  Age: 60 Year
  Sex: Male

DRUGS (15)
  1. OPIUM TINCTURE [Suspect]
     Indication: DIARRHOEA
     Route: 048
     Dates: start: 20120820, end: 20120904
  2. ONO-4538 [Suspect]
     Indication: MALIGNANT MELANOMA
     Route: 042
     Dates: start: 20120507, end: 20120907
  3. VITAMIN B COMPLEX [Suspect]
     Indication: DIARRHEA
     Dates: start: 20120820
  4. LOPEMIN [Concomitant]
  5. TANNALBIN [Concomitant]
  6. BIO-THREE [Concomitant]
  7. BUSCOPAN [Concomitant]
  8. DERMOVATE [Concomitant]
  9. HIRUDOID [Concomitant]
  10. NERISONE [Concomitant]
  11. LOCOID [Concomitant]
  12. ZYRTEC [Concomitant]
  13. IPD-1151T [Concomitant]
  14. ALLELOCK [Concomitant]
  15. ADSORBIN (NATURAL ALUMINIUM SILICATE) [Concomitant]

REACTIONS (5)
  - Diarrhoea [None]
  - Gastrointestinal inflammation [None]
  - Malaise [None]
  - Decreased appetite [None]
  - Malnutrition [None]
